FAERS Safety Report 9739134 (Version 1)
Quarter: 2013Q4

REPORT INFORMATION
  Report Type: Spontaneous
  Country: US (occurrence: US)
  Receive Date: 20131209
  Receipt Date: 20131209
  Transmission Date: 20140711
  Serious: Yes (Death)
  Sender: FDA-Public Use
  Company Number: US-ASTELLAS-2013US012744

PATIENT
  Age: 77 Year
  Sex: Female

DRUGS (3)
  1. TARCEVA [Suspect]
     Indication: NEOPLASM MALIGNANT
     Dosage: 150 MG, UID/QD
     Route: 048
     Dates: start: 20130906
  2. ZYRTEC [Concomitant]
     Indication: PRODUCT USED FOR UNKNOWN INDICATION
     Dosage: UNK
     Route: 065
  3. POTASSIUM [Concomitant]
     Indication: PRODUCT USED FOR UNKNOWN INDICATION
     Dosage: UNK
     Route: 065

REACTIONS (2)
  - Off label use [Unknown]
  - Death [Fatal]
